FAERS Safety Report 4362491-4 (Version None)
Quarter: 2004Q2

REPORT INFORMATION
  Report Type: 
  Country: None (occurrence: None)
  Receive Date: 20040521
  Receipt Date: 20040512
  Transmission Date: 20050107
  Serious: Yes (Other)
  Sender: FDA-Public Use
  Company Number: PHBS2004BR06492

PATIENT
  Age: 30 Year
  Sex: Female
  Weight: 52 kg

DRUGS (3)
  1. SYNTOCINON [Suspect]
     Indication: RHINITIS
     Dosage: ONE SPRAY /NOSTRIL
     Route: 045
     Dates: start: 20040512, end: 20040512
  2. AMPICILLIN [Concomitant]
     Indication: VAGINAL INFECTION
     Dosage: 1 TABLET EVERY 8 HOURS
     Route: 048
  3. BIOVAGIN CREAM [Concomitant]

REACTIONS (9)
  - ABDOMINAL PAIN [None]
  - COMPLICATIONS OF MATERNAL EXPOSURE TO THERAPEUTIC DRUGS [None]
  - DRUG EXPOSURE DURING PREGNANCY [None]
  - MEDICATION ERROR [None]
  - NERVOUSNESS [None]
  - RHINITIS [None]
  - UTERINE CONTRACTIONS DURING PREGNANCY [None]
  - UTERINE HYPERTONUS [None]
  - VAGINAL HAEMORRHAGE [None]
